FAERS Safety Report 7842646-4 (Version None)
Quarter: 2011Q4

REPORT INFORMATION
  Report Type: 
  Country: None (occurrence: None)
  Receive Date: 20111025
  Receipt Date: 20111019
  Transmission Date: 20120403
  Serious: Yes (Death, Other)
  Sender: FDA-Public Use
  Company Number: JP-SANOFI-AVENTIS-2011SA065753

PATIENT
  Age: 71 Year
  Sex: Male

DRUGS (7)
  1. MEROPENEM [Concomitant]
     Dosage: RUOTE: DR
  2. LEVOLEUCOVORIN CALCIUM [Suspect]
     Route: 041
     Dates: end: 20100810
  3. OXALIPLATIN [Suspect]
     Indication: RECTAL CANCER
     Dosage: ROUTE: DR
     Route: 041
     Dates: start: 20100622
  4. OXALIPLATIN [Suspect]
     Dosage: ROUTE: DR
     Route: 041
     Dates: end: 20100810
  5. LEVOLEUCOVORIN CALCIUM [Suspect]
     Indication: RECTAL CANCER
     Dosage: ROUTE: DR
     Route: 041
     Dates: start: 20100622
  6. FLUOROURACIL [Concomitant]
     Indication: RECTAL CANCER
     Route: 042
     Dates: start: 20100622, end: 20100622
  7. FLUOROURACIL [Concomitant]
     Dosage: FORM: CONTINOUS INFUSION
     Route: 041
     Dates: start: 20100622, end: 20100810

REACTIONS (3)
  - PLATELET COUNT DECREASED [None]
  - NECROTISING FASCIITIS [None]
  - FEBRILE NEUTROPENIA [None]
